FAERS Safety Report 24829745 (Version 2)
Quarter: 2025Q1

REPORT INFORMATION
  Report Type: Spontaneous
  Country: SG (occurrence: SG)
  Receive Date: 20250110
  Receipt Date: 20250116
  Transmission Date: 20250408
  Serious: Yes (Other)
  Sender: SANOFI AVENTIS
  Company Number: SG-SA-2025SA008530

PATIENT
  Age: 40 Year

DRUGS (1)
  1. DUPIXENT [Suspect]
     Active Substance: DUPILUMAB
     Indication: Asthma
     Route: 065
     Dates: start: 20241202

REACTIONS (1)
  - Deafness bilateral [Unknown]

NARRATIVE: CASE EVENT DATE: 20241202
